FAERS Safety Report 4977116-4 (Version None)
Quarter: 2006Q1

REPORT INFORMATION
  Report Type: 
  Country: None (occurrence: None)
  Receive Date: 20060223
  Receipt Date: 20050531
  Transmission Date: 20060701
  Serious: Yes (Hospitalization, Other)
  Sender: FDA-Public Use
  Company Number: HQWYE064901JUN05

PATIENT
  Age: 41 Year
  Sex: Female

DRUGS (1)
  1. EFFEXOR [Suspect]
     Dates: end: 20050501

REACTIONS (1)
  - THROMBOCYTOPENIA [None]
